FAERS Safety Report 14562142 (Version 1)
Quarter: 2018Q1

REPORT INFORMATION
  Report Type: Spontaneous
  Country: US (occurrence: US)
  Receive Date: 20180222
  Receipt Date: 20180222
  Transmission Date: 20180509
  Serious: No
  Sender: FDA-Public Use
  Company Number: US-TEVA-2018-US-853247

PATIENT
  Sex: Female

DRUGS (2)
  1. MICONAZOLE. [Suspect]
     Active Substance: MICONAZOLE
     Indication: ANTIFUNGAL TREATMENT
     Dosage: 3 COMBO
  2. MICONAZOLE. [Suspect]
     Active Substance: MICONAZOLE
     Dosage: 200 MG/2%

REACTIONS (1)
  - Drug ineffective [Unknown]
